FAERS Safety Report 6820483-7 (Version None)
Quarter: 2010Q3

REPORT INFORMATION
  Report Type: 
  Country: None (occurrence: None)
  Receive Date: 20100707
  Receipt Date: 20100603
  Transmission Date: 20110219
  Serious: Yes (Hospitalization)
  Sender: FDA-Public Use
  Company Number: US-BIOGENIDEC-2010BI014033

PATIENT
  Age: 49 Year
  Sex: Female

DRUGS (2)
  1. AVONEX [Suspect]
     Indication: MULTIPLE SCLEROSIS
     Route: 030
     Dates: start: 20080901
  2. AVONEX [Suspect]
     Route: 030
     Dates: start: 20050101

REACTIONS (7)
  - DEHYDRATION [None]
  - MALAISE [None]
  - MULTIPLE SCLEROSIS RELAPSE [None]
  - NEPHROLITHIASIS [None]
  - PLATELET COUNT DECREASED [None]
  - THROMBOSIS [None]
  - URINARY TRACT INFECTION [None]
